FAERS Safety Report 9999518 (Version 1)
Quarter: 2014Q1

REPORT INFORMATION
  Report Type: Spontaneous
  Country: US (occurrence: US)
  Receive Date: 20140312
  Receipt Date: 20140312
  Transmission Date: 20141002
  Serious: No
  Sender: FDA-Public Use
  Company Number: US-009507513-1403USA003391

PATIENT
  Age: 18 Year
  Sex: Female
  Weight: 54.42 kg

DRUGS (1)
  1. IMPLANON [Suspect]
     Indication: CONTRACEPTION
     Dosage: 1 ROD UP TO 3 YEARS, RIGHT ARM
     Route: 059
     Dates: start: 201102

REACTIONS (3)
  - Menorrhagia [Unknown]
  - Amenorrhoea [Recovered/Resolved]
  - Incorrect drug administration duration [Unknown]
